FAERS Safety Report 8575753-1 (Version None)
Quarter: 2012Q3

REPORT INFORMATION
  Report Type: 
  Country: None (occurrence: None)
  Receive Date: 20120807
  Receipt Date: 20120730
  Transmission Date: 20120928
  Serious: Yes (Hospitalization)
  Sender: FDA-Public Use
  Company Number: US-BRISTOL-MYERS SQUIBB COMPANY-16656928

PATIENT
  Age: 69 Year
  Sex: Female
  Weight: 104 kg

DRUGS (6)
  1. MORPHINE SULFATE [Concomitant]
  2. PERCOCET [Concomitant]
  3. METHOTREXATE SODIUM [Suspect]
     Indication: RHEUMATOID ARTHRITIS
     Route: 058
     Dates: start: 20081208
  4. VITAMIN TAB [Concomitant]
  5. ORENCIA [Suspect]
     Indication: RHEUMATOID ARTHRITIS
     Dosage: INF. LAST DOSE ON:AUG2010
     Route: 042
     Dates: start: 20100101, end: 20100801
  6. PREDNISONE [Suspect]
     Indication: RHEUMATOID ARTHRITIS
     Dates: start: 20081208

REACTIONS (4)
  - COMA [None]
  - ACUTE RESPIRATORY DISTRESS SYNDROME [None]
  - CARDIAC DISORDER [None]
  - PNEUMONIA [None]
